FAERS Safety Report 10255651 (Version 1)
Quarter: 2014Q2

REPORT INFORMATION
  Report Type: Spontaneous
  Country: US (occurrence: None)
  Receive Date: 20140522
  Receipt Date: 20140522
  Transmission Date: 20141212
  Serious: No
  Sender: FDA-Public Use
  Company Number: 1000054109

PATIENT
  Age: 58 Year
  Sex: Male

DRUGS (7)
  1. TUDORZA PRESSAIR (ACLIDINIUM BROMIDE) (400 MICROGRAM, POWDER) [Suspect]
     Indication: CHRONIC OBSTRUCTIVE PULMONARY DISEASE
     Route: 055
     Dates: start: 20140204
  2. VENTOLIN HFA (SALBUTAMOL SULFATE) [Suspect]
     Indication: CHRONIC OBSTRUCTIVE PULMONARY DISEASE
     Dates: start: 20140204
  3. SINGULAIR (MONTELUKAST SODIUM) TABLET [Suspect]
     Indication: DERMATITIS ALLERGIC
     Dates: start: 20140203
  4. SINGULAIR (MONTELUKAST SODIUM) TABLET [Suspect]
     Indication: PRURITUS
     Dates: start: 20140203
  5. NEXIUM (ESOMEPRAZOLE) [Concomitant]
  6. LISINOPRIL [Concomitant]
  7. HYDROCHLORATHIAZIDE [Concomitant]

REACTIONS (2)
  - Rash [None]
  - Pruritus [None]
